FAERS Safety Report 6199646-2 (Version None)
Quarter: 2009Q2

REPORT INFORMATION
  Report Type: 
  Country: None (occurrence: None)
  Receive Date: 20090522
  Receipt Date: 20090513
  Transmission Date: 20091009
  Serious: Yes (Other)
  Sender: FDA-Public Use
  Company Number: JP-PFIZER INC-2009212580

PATIENT
  Age: 73 Year

DRUGS (2)
  1. BANAN [Suspect]
     Indication: SWELLING
     Dosage: 200 MG, 2X/DAY, AFTER BREAKFAST, SUPPER
     Route: 048
     Dates: end: 20090423
  2. MYSER [Suspect]
     Dosage: 5 G, UNK
     Route: 061
     Dates: start: 20090423

REACTIONS (1)
  - MUSCLE SPASMS [None]
